FAERS Safety Report 18025975 (Version 1)
Quarter: 2020Q3

REPORT INFORMATION
  Report Type: Spontaneous
  Country: US (occurrence: US)
  Receive Date: 20200715
  Receipt Date: 20200715
  Transmission Date: 20201103
  Serious: No
  Sender: FDA-Public Use
  Company Number: US-009507513-2007USA004960

PATIENT
  Sex: Male

DRUGS (1)
  1. KEYTRUDA [Suspect]
     Active Substance: PEMBROLIZUMAB
     Dosage: UNK
     Dates: start: 201910

REACTIONS (6)
  - Cough [Recovering/Resolving]
  - Fatigue [Unknown]
  - Anaemia [Unknown]
  - Constipation [Unknown]
  - Insomnia [Unknown]
  - Dyspepsia [Unknown]
